FAERS Safety Report 15132917 (Version 1)
Quarter: 2018Q3

REPORT INFORMATION
  Report Type: Spontaneous
  Country: FR (occurrence: FR)
  Receive Date: 20180712
  Receipt Date: 20180712
  Transmission Date: 20181010
  Serious: Yes (Other)
  Sender: FDA-Public Use
  Company Number: FR-TEVA-2018-FR-921967

PATIENT
  Age: 4 Month
  Sex: Male

DRUGS (3)
  1. INSULIN [Concomitant]
     Active Substance: INSULIN NOS
     Indication: NEONATAL DIABETES MELLITUS
     Dosage: REDUCED PROGRESSIVELY AND DISCONTINUED ON THE 3RD DAY AFTER THE INITIATION OF GLIBENCLAMIDE
     Route: 065
  2. GLIBENCLAMIDE [Suspect]
     Active Substance: GLYBURIDE
     Dosage: 0.15 MG/KG/DAY (0.4 MG/DAY) IN 2 DIVIDED DOSES
     Route: 048
  3. GLIBENCLAMIDE [Suspect]
     Active Substance: GLYBURIDE
     Indication: NEONATAL DIABETES MELLITUS
     Dosage: 0.1 MG/KG DAILY
     Route: 048

REACTIONS (3)
  - Drug administered to patient of inappropriate age [Unknown]
  - Off label use [Unknown]
  - Hypoglycaemia neonatal [Recovered/Resolved]
